FAERS Safety Report 21038592 (Version 1)
Quarter: 2022Q3

REPORT INFORMATION
  Report Type: Spontaneous
  Country: GB (occurrence: GB)
  Receive Date: 20220704
  Receipt Date: 20220704
  Transmission Date: 20221026
  Serious: Yes (Life-Threatening, Other)
  Sender: FDA-Public Use
  Company Number: None

PATIENT
  Sex: Male

DRUGS (20)
  1. DORAVIRINE [Suspect]
     Active Substance: DORAVIRINE
     Indication: HIV test positive
     Dosage: 100 MILLIGRAM, QD (REPORTED AS OD)
  2. DOVATO [Suspect]
     Active Substance: DOLUTEGRAVIR SODIUM\LAMIVUDINE
     Indication: HIV test positive
     Dosage: ONE TABLET DAILY
     Dates: end: 20220624
  3. AMLODIPINE [Concomitant]
     Active Substance: AMLODIPINE BESYLATE
  4. ATORVASTATIN [Concomitant]
     Active Substance: ATORVASTATIN
  5. DIAZEPAM [Concomitant]
     Active Substance: DIAZEPAM
  6. DIHYDROCODEINE [Concomitant]
     Active Substance: DIHYDROCODEINE
  7. FENOFIBRATE [Concomitant]
     Active Substance: FENOFIBRATE
  8. FLUOXETINE [Concomitant]
     Active Substance: FLUOXETINE HYDROCHLORIDE
  9. BECLOMETHASONE\FORMOTEROL [Concomitant]
     Active Substance: BECLOMETHASONE\FORMOTEROL
  10. LEVOTHYROXINE [Concomitant]
     Active Substance: LEVOTHYROXINE
  11. METOCLOPRAMIDE [Concomitant]
     Active Substance: METOCLOPRAMIDE
  12. NORDITROPIN [Concomitant]
     Active Substance: SOMATROPIN
  13. NOVORAPID [Concomitant]
     Active Substance: INSULIN ASPART
  14. OMEPRAZOLE [Concomitant]
     Active Substance: OMEPRAZOLE
  15. ACETAMINOPHEN [Concomitant]
     Active Substance: ACETAMINOPHEN
  16. PROPRANOLOL [Concomitant]
     Active Substance: PROPRANOLOL HYDROCHLORIDE
  17. RAMIPRIL [Concomitant]
     Active Substance: RAMIPRIL
  18. TESTOSTERONE [Concomitant]
     Active Substance: TESTOSTERONE
  19. ACYCLOVIR [Concomitant]
     Active Substance: ACYCLOVIR
  20. TOUJEO [Concomitant]
     Active Substance: INSULIN GLARGINE

REACTIONS (9)
  - Hallucination [Recovering/Resolving]
  - Suicidal ideation [Recovering/Resolving]
  - Abnormal dreams [Recovering/Resolving]
  - Muscular weakness [Recovering/Resolving]
  - Depression [Unknown]
  - Paraesthesia [Recovering/Resolving]
  - Confusional state [Recovering/Resolving]
  - Headache [Recovered/Resolved]
  - Nausea [Recovering/Resolving]
